FAERS Safety Report 13193150 (Version 1)
Quarter: 2017Q1

REPORT INFORMATION
  Report Type: Report from Study
  Country: JP (occurrence: JP)
  Receive Date: 20170207
  Receipt Date: 20170207
  Transmission Date: 20170428
  Serious: Yes (Hospitalization)
  Sender: FDA-Public Use
  Company Number: JP-JNJFOC-20170205658

PATIENT
  Age: 40 Year
  Sex: Female
  Weight: 57 kg

DRUGS (19)
  1. HEPARINOID [Concomitant]
     Active Substance: CHONDROITIN SULFATE (BOVINE)
     Indication: INJURY
     Dosage: DAILY IN SUFFICIENT QUANTITY AS NEEDED
     Route: 048
     Dates: start: 20160224
  2. ABILIFY [Concomitant]
     Active Substance: ARIPIPRAZOLE
     Indication: INSOMNIA
     Route: 048
     Dates: start: 20160622
  3. REBAMIPIDE [Concomitant]
     Active Substance: REBAMIPIDE
     Indication: GASTRIC MUCOSAL LESION
     Route: 048
     Dates: start: 20160727
  4. MEDICON [Concomitant]
     Active Substance: DEXTROMETHORPHAN HYDROBROMIDE
     Indication: BRONCHITIS
     Route: 048
     Dates: start: 20161224
  5. RIVOTRIL [Concomitant]
     Active Substance: CLONAZEPAM
     Indication: INSOMNIA
     Route: 048
     Dates: start: 20160817
  6. LOXOPROFEN [Concomitant]
     Active Substance: LOXOPROFEN
     Indication: CANCER PAIN
     Route: 048
     Dates: start: 20160727
  7. SODIUM BICARBONATE W/SODIUM GUALENATE [Concomitant]
     Indication: PROPHYLAXIS
     Route: 049
     Dates: start: 20160907
  8. LYRICA [Concomitant]
     Active Substance: PREGABALIN
     Indication: HYPOAESTHESIA
     Dosage: AFTER EACH MEAL
     Route: 048
     Dates: start: 20160210
  9. MICARDIS [Concomitant]
     Active Substance: TELMISARTAN
     Indication: HYPERTENSION
     Dosage: ONCE DAILY AFTER BREAKFAST
     Route: 048
     Dates: start: 20151224
  10. ZITHROMAC [Concomitant]
     Active Substance: AZITHROMYCIN DIHYDRATE
     Indication: BRONCHITIS
     Route: 048
     Dates: start: 20161224
  11. CINAL [Concomitant]
     Active Substance: ASCORBIC ACID\CALCIUM PANTOTHENATE
     Indication: PIGMENTATION DISORDER
     Dosage: TWICE DAILY AFTER EACH MEAL AS NEEDED
     Route: 048
     Dates: start: 20160224
  12. DOXIL [Suspect]
     Active Substance: DOXORUBICIN HYDROCHLORIDE
     Indication: OVARIAN CANCER
     Route: 042
     Dates: start: 20160518, end: 20161118
  13. ESTRANA [Concomitant]
     Active Substance: ESTRADIOL
     Indication: INJURY
     Dosage: SUFFICIENT QUANTITY AS NEEDED
     Route: 062
     Dates: start: 20151007
  14. CONTOMIN [Concomitant]
     Active Substance: CHLORPROMAZINE
     Indication: INSOMNIA
     Dosage: AFTER DINNER
     Route: 048
     Dates: start: 20160711
  15. METHYCOBAL [Concomitant]
     Active Substance: METHYLCOBALAMIN
     Indication: HYPOAESTHESIA
     Dosage: AFTER EACH MEAL
     Route: 048
     Dates: start: 20151103
  16. MAGNESIUM OXIDE. [Concomitant]
     Active Substance: MAGNESIUM OXIDE
     Indication: CONSTIPATION
     Route: 048
     Dates: start: 20151109
  17. BIO-THREE [Concomitant]
     Active Substance: HERBALS
     Indication: CONSTIPATION
     Dosage: ONCE DAILY AS NEEDED AFTER EACH MEAL
     Route: 048
     Dates: start: 20151102
  18. LUNESTA [Concomitant]
     Active Substance: ESZOPICLONE
     Indication: INSOMNIA
     Dosage: AFTER DINNER
     Route: 048
     Dates: start: 20160627
  19. CARBOCISTEINE [Concomitant]
     Active Substance: CARBOCYSTEINE
     Indication: BRONCHITIS
     Route: 048
     Dates: start: 20161224

REACTIONS (1)
  - Interstitial lung disease [Recovering/Resolving]

NARRATIVE: CASE EVENT DATE: 20161228
